FAERS Safety Report 7898259-1 (Version None)
Quarter: 2011Q4

REPORT INFORMATION
  Report Type: 
  Country: None (occurrence: None)
  Receive Date: 20111107
  Receipt Date: 20111028
  Transmission Date: 20120403
  Serious: Yes (Hospitalization)
  Sender: FDA-Public Use
  Company Number: JP-GLAXOSMITHKLINE-B0744503A

PATIENT
  Sex: Female
  Weight: 57 kg

DRUGS (14)
  1. AMARYL [Concomitant]
     Indication: DIABETES MELLITUS
     Dosage: 2MG PER DAY
     Route: 048
     Dates: end: 20110822
  2. CANDESARTAN CILEXETIL [Concomitant]
     Indication: HYPERTENSION
     Dosage: 8MG PER DAY
     Route: 048
     Dates: end: 20110822
  3. MAGMITT [Concomitant]
     Indication: ILEUS
     Dosage: 1980MG PER DAY
     Route: 048
  4. ADJUST A [Concomitant]
     Indication: ILEUS
     Dosage: 80MG PER DAY
     Route: 048
  5. NOVORAPID [Concomitant]
     Indication: DIABETES MELLITUS
     Route: 058
  6. CRESTOR [Concomitant]
     Indication: HYPERCHOLESTEROLAEMIA
     Dosage: 5MG PER DAY
     Route: 048
     Dates: end: 20110822
  7. CHINESE MEDICINE [Concomitant]
     Indication: ILEUS
     Route: 048
     Dates: end: 20110822
  8. ASPIRIN [Concomitant]
     Indication: ARTERIOSCLEROSIS OBLITERANS
     Dosage: 100MG PER DAY
     Route: 048
     Dates: end: 20110822
  9. ENALAPRIL MALEATE [Concomitant]
     Indication: HYPERTENSION
     Dosage: 5MG PER DAY
     Route: 048
     Dates: end: 20110822
  10. VALTREX [Suspect]
     Indication: RASH
     Dosage: 1000MG PER DAY
     Route: 048
     Dates: start: 20110820, end: 20110820
  11. AMLODIPINE [Concomitant]
     Indication: HYPERTENSION
     Dosage: 5MG PER DAY
     Route: 048
  12. VOLTAREN-XR [Concomitant]
     Route: 048
  13. EPADEL S [Concomitant]
     Indication: ARTERIOSCLEROSIS OBLITERANS
     Dosage: 1800MG PER DAY
     Route: 048
     Dates: end: 20110822
  14. BIO THREE [Concomitant]
     Dosage: 3MG PER DAY
     Route: 048
     Dates: end: 20110822

REACTIONS (5)
  - RENAL FAILURE ACUTE [None]
  - RENAL TUBULAR DISORDER [None]
  - BLOOD CREATININE INCREASED [None]
  - MALAISE [None]
  - OEDEMA PERIPHERAL [None]
